FAERS Safety Report 5530113-2 (Version None)
Quarter: 2007Q4

REPORT INFORMATION
  Report Type: 
  Country: None (occurrence: None)
  Receive Date: 20071130
  Receipt Date: 20071123
  Transmission Date: 20080405
  Serious: Yes (Other)
  Sender: FDA-Public Use
  Company Number: PHEH2007US15234

PATIENT
  Age: 69 Year
  Sex: Female

DRUGS (1)
  1. TEKTURNA [Suspect]
     Indication: HYPERTENSION
     Dates: start: 20071001

REACTIONS (4)
  - CHOLELITHIASIS [None]
  - DIARRHOEA [None]
  - NAUSEA [None]
  - SURGERY [None]
